FAERS Safety Report 8013212-5 (Version None)
Quarter: 2011Q4

REPORT INFORMATION
  Report Type: 
  Country: None (occurrence: None)
  Receive Date: 20111229
  Receipt Date: 20111229
  Transmission Date: 20120403
  Serious: No
  Sender: FDA-Public Use
  Company Number: None

PATIENT
  Age: 58 Year
  Sex: Male
  Weight: 96.161 kg

DRUGS (1)
  1. ZERIT [Suspect]
     Indication: HIV INFECTION
     Dosage: 40MG
     Dates: start: 20100201, end: 20110412

REACTIONS (3)
  - MASS [None]
  - GYNAECOMASTIA [None]
  - FAT TISSUE INCREASED [None]
